FAERS Safety Report 22227753 (Version 3)
Quarter: 2023Q2

REPORT INFORMATION
  Report Type: Spontaneous
  Country: PK (occurrence: None)
  Receive Date: 20230419
  Receipt Date: 20230606
  Transmission Date: 20230721
  Serious: Yes (Death, Life-Threatening, Hospitalization, Other)
  Sender: FDA-Public Use
  Company Number: PK-ROCHE-3333503

PATIENT
  Age: 65 Year
  Sex: Female

DRUGS (2)
  1. KADCYLA [Suspect]
     Active Substance: ADO-TRASTUZUMAB EMTANSINE
     Indication: Invasive ductal breast carcinoma
     Route: 065
  2. HERCEPTIN [Suspect]
     Active Substance: TRASTUZUMAB
     Indication: Breast cancer
     Dosage: INITIALLY 300MG THEN 200MG BECAUSE OF LIVER PROFILE DERANGED
     Route: 065

REACTIONS (10)
  - Metastases to central nervous system [Not Recovered/Not Resolved]
  - Drug resistance [Not Recovered/Not Resolved]
  - Hemiplegia [Not Recovered/Not Resolved]
  - Seizure [Not Recovered/Not Resolved]
  - Liver function test abnormal [Unknown]
  - Death [Fatal]
  - Vomiting [Unknown]
  - Incontinence [Unknown]
  - Dysstasia [Unknown]
  - Off label use [Unknown]

NARRATIVE: CASE EVENT DATE: 20220401
